FAERS Safety Report 4393313-3 (Version None)
Quarter: 2004Q3

REPORT INFORMATION
  Report Type: 
  Country: None (occurrence: None)
  Receive Date: 20040701
  Receipt Date: 20040621
  Transmission Date: 20050211
  Serious: Yes (Other)
  Sender: FDA-Public Use
  Company Number: DEU-2004-0000887

PATIENT
  Age: 28 Year
  Sex: Female

DRUGS (3)
  1. OXYCODONE HCL [Suspect]
     Indication: PAIN
     Dosage: 20 MG, BID, ORAL
     Route: 048
  2. DIURETICS [Concomitant]
  3. CORTISONE [Concomitant]

REACTIONS (13)
  - ANXIETY [None]
  - APATHY [None]
  - CHILLS [None]
  - COLD SWEAT [None]
  - CRYING [None]
  - FATIGUE [None]
  - FEAR [None]
  - HYPERHIDROSIS [None]
  - HYPERSOMNIA [None]
  - MALAISE [None]
  - MEDICATION ERROR [None]
  - NAUSEA [None]
  - RESTLESSNESS [None]
